FAERS Safety Report 7632953-2 (Version None)
Quarter: 2011Q3

REPORT INFORMATION
  Report Type: 
  Country: None (occurrence: None)
  Receive Date: 20110725
  Receipt Date: 20110714
  Transmission Date: 20111222
  Serious: Yes (Other)
  Sender: FDA-Public Use
  Company Number: PHHY2011BR63441

PATIENT
  Sex: Female

DRUGS (6)
  1. TACROLIMUS [Suspect]
     Dosage: 9 MG, BID
     Route: 048
     Dates: start: 20090722
  2. PREDNISONE [Suspect]
     Dosage: 7.5 MG
     Route: 048
     Dates: start: 20100622
  3. PREDNISONE [Suspect]
     Indication: RENAL TRANSPLANT
     Dosage: 1.5 MG, ONCE/SINGLE
     Route: 048
     Dates: start: 20090820, end: 20091028
  4. PREDNISONE [Suspect]
     Dosage: 10 MG, ONCE/SINGLE
     Route: 048
     Dates: start: 20091216, end: 20100112
  5. PREDNISONE [Suspect]
     Dosage: 8.75 MG, ONCE/SINGLE
     Dates: start: 20100113, end: 20100621
  6. MYFORTIC [Suspect]
     Indication: RENAL TRANSPLANT
     Dosage: 1440 MG, BID
     Route: 048
     Dates: start: 20090923

REACTIONS (4)
  - BLOOD CREATININE INCREASED [None]
  - RENAL TUBULAR DISORDER [None]
  - KIDNEY FIBROSIS [None]
  - RENAL TUBULAR ATROPHY [None]
